FAERS Safety Report 7703504-9 (Version None)
Quarter: 2011Q3

REPORT INFORMATION
  Report Type: 
  Country: None (occurrence: None)
  Receive Date: 20110823
  Receipt Date: 20110809
  Transmission Date: 20111222
  Serious: Yes (Hospitalization, Other)
  Sender: FDA-Public Use
  Company Number: US-ELI_LILLY_AND_COMPANY-US201107002065

PATIENT
  Age: 76 Year
  Sex: Female

DRUGS (1)
  1. FORTEO [Suspect]
     Indication: OSTEOPOROSIS
     Dosage: 20 UG, UNKNOWN
     Route: 065

REACTIONS (8)
  - INFLUENZA LIKE ILLNESS [None]
  - FEELING HOT [None]
  - MALAISE [None]
  - PELVIC FRACTURE [None]
  - HEADACHE [None]
  - PAIN [None]
  - FALL [None]
  - NAUSEA [None]
